FAERS Safety Report 5193480-8 (Version None)
Quarter: 2006Q4

REPORT INFORMATION
  Report Type: 
  Country: None (occurrence: None)
  Receive Date: 20061228
  Receipt Date: 20060523
  Transmission Date: 20070319
  Serious: No
  Sender: FDA-Public Use
  Company Number: US-GLAXOSMITHKLINE-A0606650A

PATIENT
  Age: 68 Year
  Sex: Female

DRUGS (1)
  1. FLONASE [Suspect]
     Dosage: 1SPR AS REQUIRED
     Route: 045
     Dates: start: 20050101

REACTIONS (1)
  - DRUG INEFFECTIVE [None]
